FAERS Safety Report 8333932-2 (Version None)
Quarter: 2012Q2

REPORT INFORMATION
  Report Type: 
  Country: None (occurrence: None)
  Receive Date: 20120503
  Receipt Date: 20110128
  Transmission Date: 20120825
  Serious: Yes (Other)
  Sender: FDA-Public Use
  Company Number: US-TEVA-2011000492

PATIENT
  Sex: Male
  Weight: 81.72 kg

DRUGS (8)
  1. NUVIGIL [Suspect]
     Indication: DEPRESSION
     Route: 048
     Dates: start: 20101101, end: 20110115
  2. MULTI-VITAMIN [Concomitant]
  3. OXYBUTININ [Concomitant]
     Dates: start: 20100101
  4. VITAMIN D [Concomitant]
  5. ANDROGEL [Concomitant]
     Dates: start: 20100101
  6. LEXAPRO [Concomitant]
  7. NUVIGIL [Suspect]
     Route: 048
     Dates: start: 20110126
  8. NUVIGIL [Suspect]
     Indication: ASTHENIA
     Route: 048
     Dates: start: 20110117, end: 20110126

REACTIONS (3)
  - DEPRESSION [None]
  - FEELING ABNORMAL [None]
  - DRUG ADMINISTRATION ERROR [None]
